FAERS Safety Report 5942718-5 (Version None)
Quarter: 2008Q4

REPORT INFORMATION
  Report Type: 
  Country: None (occurrence: None)
  Receive Date: 20081106
  Receipt Date: 20081027
  Transmission Date: 20090506
  Serious: Yes (Other)
  Sender: FDA-Public Use
  Company Number: DK-JNJFOC-20081002577

PATIENT
  Sex: Male

DRUGS (5)
  1. REMICADE [Suspect]
     Indication: RHEUMATOID ARTHRITIS
     Route: 042
  2. SALAZOPYRIN [Concomitant]
  3. CARDURA [Concomitant]
  4. SPARKAL [Concomitant]
  5. AMLODIPINE [Concomitant]

REACTIONS (1)
  - NEPHROTIC SYNDROME [None]
